FAERS Safety Report 5282871-2 (Version None)
Quarter: 2007Q1

REPORT INFORMATION
  Report Type: 
  Country: None (occurrence: None)
  Receive Date: 20070329
  Receipt Date: 20070329
  Transmission Date: 20070707
  Serious: No
  Sender: FDA-Public Use
  Company Number: None

PATIENT
  Age: 67 Year
  Sex: Female
  Weight: 62.5964 kg

DRUGS (1)
  1. GLIPIZIDE [Suspect]
     Dosage: 2 TIMES TWICE DAILY PO
     Route: 048
     Dates: start: 20061226, end: 20070328

REACTIONS (2)
  - RASH [None]
  - SUNBURN [None]
